FAERS Safety Report 7450655-2 (Version None)
Quarter: 2011Q2

REPORT INFORMATION
  Report Type: 
  Country: None (occurrence: None)
  Receive Date: 20110422
  Receipt Date: 20110415
  Transmission Date: 20111010
  Serious: Yes (Life-Threatening, Other)
  Sender: FDA-Public Use
  Company Number: 1000020340

PATIENT
  Sex: Male

DRUGS (5)
  1. SYMBICORT (BUDESONIDE W/ FOROTEROL FUMARATE) (BUDESONIDE W/ FORMOTEROL [Concomitant]
  2. SPIRIVA (TIOTROPIUM BROMIDE) (TIOTROPIUM BROMIDE) [Concomitant]
  3. SALBUTAMOL (SALBUTAMOL) (SALBUTAMOL) [Concomitant]
  4. STATIN (NOS) (STATIN (NOS)) (STATIN (NOS)) [Concomitant]
  5. DALIRESP [Suspect]
     Indication: CHRONIC OBSTRUCTIVE PULMONARY DISEASE
     Dosage: 1 DOSAGE FORMS (1 DOSAGE FORMS,1 IN 1 D),ORAL
     Route: 048
     Dates: start: 20110310

REACTIONS (3)
  - LIVER FUNCTION TEST ABNORMAL [None]
  - JAUNDICE [None]
  - BLOOD BILIRUBIN INCREASED [None]
